FAERS Safety Report 6295259-2 (Version None)
Quarter: 2009Q3

REPORT INFORMATION
  Report Type: 
  Country: None (occurrence: None)
  Receive Date: 20090803
  Receipt Date: 20090722
  Transmission Date: 20100115
  Serious: Yes (Other)
  Sender: FDA-Public Use
  Company Number: AU-ELI_LILLY_AND_COMPANY-AU200907005268

PATIENT
  Age: 18 Year
  Sex: Female

DRUGS (10)
  1. FLUOXETINE [Suspect]
     Indication: FIBROMYALGIA
     Dosage: 80 MG, DAILY (1/D)
     Route: 048
     Dates: start: 20070101, end: 20090623
  2. FLUOXETINE [Suspect]
     Dosage: 60 MG, DAILY (1/D)
     Route: 048
     Dates: start: 20090624, end: 20090703
  3. FLUOXETINE [Suspect]
     Dosage: 40 MG, DAILY (1/D)
     Route: 048
     Dates: start: 20090704, end: 20090713
  4. FLUOXETINE [Suspect]
     Dosage: 20 MG, DAILY (1/D)
     Route: 048
     Dates: start: 20090714
  5. SANDOMIGRAN [Concomitant]
  6. LEVOTHYROXINE SODIUM [Concomitant]
  7. SERETIDE [Concomitant]
  8. YASMIN [Concomitant]
  9. FOLIC ACID [Concomitant]
  10. METAMUCIL [Concomitant]

REACTIONS (11)
  - DISORIENTATION [None]
  - EYE MOVEMENT DISORDER [None]
  - HEAD DISCOMFORT [None]
  - LYMPHADENOPATHY [None]
  - MOVEMENT DISORDER [None]
  - OFF LABEL USE [None]
  - OROPHARYNGEAL PAIN [None]
  - ORTHOPNOEA [None]
  - OVERDOSE [None]
  - SPEECH DISORDER [None]
  - SWOLLEN TONGUE [None]
